FAERS Safety Report 6915236-5 (Version None)
Quarter: 2010Q3

REPORT INFORMATION
  Report Type: 
  Country: None (occurrence: None)
  Receive Date: 20100809
  Receipt Date: 20100726
  Transmission Date: 20110219
  Serious: Yes (Death)
  Sender: FDA-Public Use
  Company Number: ES-GENENTECH-298608

PATIENT
  Age: 76 Year

DRUGS (6)
  1. RITUXIMAB [Suspect]
     Indication: NON-HODGKIN'S LYMPHOMA
     Dosage: 375 MG/M2, Q21D
     Route: 042
  2. CYCLOPHOSPHAMIDE [Suspect]
     Indication: NON-HODGKIN'S LYMPHOMA
     Dosage: 750 MG/M2, Q21D
     Route: 042
  3. VINCRISTINE [Suspect]
     Indication: NON-HODGKIN'S LYMPHOMA
     Dosage: 1.4 MG/M2, Q21D
     Route: 042
  4. VINCRISTINE [Suspect]
     Dosage: MAXIMUM DOSAGE: 2MG/M2. DAY 1, EVERY 21 DAYS
     Route: 042
  5. DOXORUBICIN HCL [Suspect]
     Indication: NON-HODGKIN'S LYMPHOMA
     Dosage: 50 MG/M2, Q21D
     Route: 042
  6. PREDNISONE [Suspect]
     Indication: NON-HODGKIN'S LYMPHOMA
     Dosage: 60 MG/M2, QDX5D/21DC
     Route: 050

REACTIONS (7)
  - ANAEMIA [None]
  - FEBRILE NEUTROPENIA [None]
  - INFECTION [None]
  - LYMPHOMA [None]
  - NEUTROPENIA [None]
  - SUDDEN DEATH [None]
  - THROMBOCYTOPENIA [None]
